FAERS Safety Report 9886052 (Version 1)
Quarter: 2014Q1

REPORT INFORMATION
  Report Type: Spontaneous
  Country: US (occurrence: US)
  Receive Date: 20140210
  Receipt Date: 20140210
  Transmission Date: 20141002
  Serious: Yes (Other)
  Sender: FDA-Public Use
  Company Number: PHHY2014US012199

PATIENT
  Age: 51 Year
  Sex: Male

DRUGS (5)
  1. IBUPROFEN [Suspect]
     Indication: PAIN
  2. LITHIUM [Interacting]
  3. VALPROATE [Concomitant]
  4. QUETIAPINE [Concomitant]
  5. RISPERIDONE [Concomitant]

REACTIONS (8)
  - Toxicity to various agents [Unknown]
  - Metabolic encephalopathy [Unknown]
  - Mental status changes [Recovered/Resolved]
  - Dysarthria [Recovering/Resolving]
  - Gait disturbance [Recovering/Resolving]
  - Renal failure [Unknown]
  - Hypophagia [Unknown]
  - Diarrhoea [Recovering/Resolving]
